FAERS Safety Report 19615282 (Version 1)
Quarter: 2021Q3

REPORT INFORMATION
  Report Type: Spontaneous
  Country: BR (occurrence: BR)
  Receive Date: 20210727
  Receipt Date: 20210727
  Transmission Date: 20211014
  Serious: Yes (Other)
  Sender: FDA-Public Use
  Company Number: BR-BAYER-2021-181635

PATIENT
  Age: 78 Year
  Sex: Female

DRUGS (3)
  1. STIVARGA [Suspect]
     Active Substance: REGORAFENIB
     Indication: ADENOCARCINOMA OF COLON
     Dosage: 160 MG, QD (WEEK 3)
  2. STIVARGA [Suspect]
     Active Substance: REGORAFENIB
     Indication: ADENOCARCINOMA OF COLON
     Dosage: 80 MG, QD (WEEK 1)
     Dates: start: 2020
  3. STIVARGA [Suspect]
     Active Substance: REGORAFENIB
     Indication: METASTASES TO LIVER
     Dosage: 120 MG, QD (WEEK 2)

REACTIONS (6)
  - Nausea [None]
  - Off label use [None]
  - Metastases to liver [None]
  - Asthenia [None]
  - Palmar-plantar erythrodysaesthesia syndrome [None]
  - Anaemia [None]

NARRATIVE: CASE EVENT DATE: 20210329
